FAERS Safety Report 4655545-6 (Version None)
Quarter: 2005Q2

REPORT INFORMATION
  Report Type: 
  Country: None (occurrence: None)
  Receive Date: 20050505
  Receipt Date: 20050422
  Transmission Date: 20051028
  Serious: Yes (Other)
  Sender: FDA-Public Use
  Company Number: 2005064304

PATIENT
  Age: 56 Year
  Sex: Female
  Weight: 58.9676 kg

DRUGS (2)
  1. BEXTRA [Suspect]
     Indication: OSTEOARTHRITIS
     Dosage: 40 MG (20 MG, 2 IN 1 D), ORAL
     Route: 048
     Dates: end: 20050401
  2. VALSARTAN [Concomitant]

REACTIONS (10)
  - ASPHYXIA [None]
  - DYSPHAGIA [None]
  - EYE SWELLING [None]
  - FOOD ALLERGY [None]
  - LYMPHATIC DISORDER [None]
  - OCULAR HYPERAEMIA [None]
  - RASH PRURITIC [None]
  - SWELLING FACE [None]
  - THYROID DISORDER [None]
  - TRACHEAL DISORDER [None]
